FAERS Safety Report 16591399 (Version 2)
Quarter: 2020Q1

REPORT INFORMATION
  Report Type: Spontaneous
  Country: BR (occurrence: BR)
  Receive Date: 20190718
  Receipt Date: 20200213
  Transmission Date: 20200409
  Serious: Yes (Other)
  Sender: FDA-Public Use
  Company Number: BR-PFIZER INC-2019302941

PATIENT
  Age: 55 Year
  Sex: Male

DRUGS (2)
  1. SUTENT [Suspect]
     Active Substance: SUNITINIB MALATE
     Indication: RENAL CANCER
     Dosage: UNK
     Dates: start: 200904, end: 2011
  2. SUTENT [Suspect]
     Active Substance: SUNITINIB MALATE
     Dosage: UNK
     Dates: start: 201906, end: 201907

REACTIONS (3)
  - Oesophageal adenocarcinoma [Unknown]
  - Second primary malignancy [Unknown]
  - Neoplasm progression [Not Recovered/Not Resolved]
